FAERS Safety Report 23098419 (Version 1)
Quarter: 2023Q4

REPORT INFORMATION
  Report Type: Spontaneous
  Country: RU (occurrence: RU)
  Receive Date: 20231023
  Receipt Date: 20231023
  Transmission Date: 20240110
  Serious: Yes (Other)
  Sender: FDA-Public Use
  Company Number: None

PATIENT
  Sex: Female
  Weight: 75 kg

DRUGS (4)
  1. METHOTREXATE [Suspect]
     Active Substance: METHOTREXATE
     Indication: Rheumatoid arthritis
     Dosage: 10 MG/ML IV SC, FAREVA UNTERAH GMBH, AUSTRIA
     Route: 042
     Dates: start: 20230712, end: 20230712
  2. METHOTREXATE SODIUM [Concomitant]
     Active Substance: METHOTREXATE SODIUM
     Indication: Product used for unknown indication
     Dosage: 50 MG/ML-0.3ML, MEDAK GMBH WEDEL, GERMANY
     Route: 058
  3. METHOTREXATE SODIUM [Concomitant]
     Active Substance: METHOTREXATE SODIUM
     Indication: Product used for unknown indication
     Dosage: 1 MG/ML- 2ML, K.O.ROMPHARM S.R.L. COMPANY, ROMANIA ?23016921
     Route: 030
     Dates: start: 20230802, end: 20230802
  4. METHOTREXATE SODIUM [Concomitant]
     Active Substance: METHOTREXATE SODIUM
     Dosage: 1 MG/ML- 2ML, K.O.ROMPHARM S.R.L. COMPANY, ROMANIA ?23016921
     Route: 058
     Dates: start: 20230802, end: 20230802

REACTIONS (5)
  - Dizziness [Recovering/Resolving]
  - Face oedema [Recovering/Resolving]
  - Oedema peripheral [Recovering/Resolving]
  - Telangiectasia [Recovering/Resolving]
  - Malaise [Recovering/Resolving]
